FAERS Safety Report 20220711 (Version 2)
Quarter: 2022Q3

REPORT INFORMATION
  Report Type: Spontaneous
  Country: JP (occurrence: JP)
  Receive Date: 20211223
  Receipt Date: 20220701
  Transmission Date: 20221027
  Serious: Yes (Hospitalization)
  Sender: FDA-Public Use
  Company Number: JP-TAKEDA-2021TJP100186

PATIENT
  Age: 61 Year
  Sex: Male

DRUGS (4)
  1. ALUNBRIG [Suspect]
     Active Substance: BRIGATINIB
     Indication: Product used for unknown indication
     Dosage: 90 MILLIGRAM
     Route: 048
     Dates: start: 20210629, end: 20210701
  2. ALUNBRIG [Suspect]
     Active Substance: BRIGATINIB
     Dosage: 30 MILLIGRAM
     Route: 048
  3. ALUNBRIG [Suspect]
     Active Substance: BRIGATINIB
     Dosage: 60 MILLIGRAM
     Route: 048
  4. ALUNBRIG [Suspect]
     Active Substance: BRIGATINIB
     Dosage: 90 MILLIGRAM
     Route: 048

REACTIONS (2)
  - Pneumonitis [Recovered/Resolved]
  - Product prescribing error [Unknown]

NARRATIVE: CASE EVENT DATE: 20210630
